FAERS Safety Report 23390470 (Version 1)
Quarter: 2024Q1

REPORT INFORMATION
  Report Type: Spontaneous
  Country: US (occurrence: US)
  Receive Date: 20240111
  Receipt Date: 20240111
  Transmission Date: 20240409
  Serious: Yes (Death, Hospitalization, Other)
  Sender: FDA-Public Use
  Company Number: US-APOTEX-2024AP000044

PATIENT
  Age: 12 Year
  Sex: Female

DRUGS (2)
  1. ACETAMINOPHEN [Suspect]
     Active Substance: ACETAMINOPHEN
     Indication: Product used for unknown indication
     Dosage: UNK
     Route: 048
  2. ASPIRIN [Suspect]
     Active Substance: ASPIRIN
     Indication: Product used for unknown indication
     Dosage: UNK
     Route: 048

REACTIONS (12)
  - Intentional overdose [Fatal]
  - Completed suicide [Fatal]
  - Vomiting [Fatal]
  - Nausea [Fatal]
  - Tinnitus [Fatal]
  - Kussmaul respiration [Fatal]
  - Abdominal pain [Fatal]
  - Circulatory collapse [Fatal]
  - Seizure [Fatal]
  - Pyrexia [Fatal]
  - Tachycardia [Fatal]
  - Hypertension [Fatal]

NARRATIVE: CASE EVENT DATE: 20220101
